FAERS Safety Report 5669227-5 (Version None)
Quarter: 2008Q1

REPORT INFORMATION
  Report Type: 
  Country: None (occurrence: None)
  Receive Date: 20080317
  Receipt Date: 20080304
  Transmission Date: 20080703
  Serious: Yes (Death, Hospitalization, Other)
  Sender: FDA-Public Use
  Company Number: US-PFIZER INC-2008019767

PATIENT
  Age: 30 Year
  Sex: Female

DRUGS (2)
  1. ZIPRASIDONE (CAPS) [Suspect]
  2. AMANTADINE HCL [Suspect]

REACTIONS (4)
  - COMPLETED SUICIDE [None]
  - ELECTROCARDIOGRAM QT PROLONGED [None]
  - OVERDOSE [None]
  - TORSADE DE POINTES [None]
